FAERS Safety Report 6419511-2 (Version None)
Quarter: 2009Q4

REPORT INFORMATION
  Report Type: 
  Country: None (occurrence: None)
  Receive Date: 20091029
  Receipt Date: 20091027
  Transmission Date: 20100525
  Serious: Yes (Other)
  Sender: FDA-Public Use
  Company Number: JAIRL17582

PATIENT
  Sex: Male
  Weight: 75 kg

DRUGS (5)
  1. RISPERIDONE [Suspect]
     Indication: SCHIZOPHRENIA
     Route: 048
     Dates: start: 19930917, end: 19931020
  2. COGENTIN [Concomitant]
     Indication: EXTRAPYRAMIDAL DISORDER
     Route: 048
     Dates: start: 19890630
  3. LIBRIUM [Concomitant]
     Indication: ANXIETY
     Route: 048
     Dates: start: 19930721
  4. CHLORPROMAZINE [Concomitant]
  5. REMOXIPRIDE [Concomitant]

REACTIONS (7)
  - BLOOD CREATINE PHOSPHOKINASE INCREASED [None]
  - HYPERHIDROSIS [None]
  - NEUROLEPTIC MALIGNANT SYNDROME [None]
  - PYREXIA [None]
  - TACHYCARDIA [None]
  - TREMOR [None]
  - UPPER RESPIRATORY TRACT INFECTION [None]
